FAERS Safety Report 10744929 (Version 1)
Quarter: 2015Q1

REPORT INFORMATION
  Report Type: Spontaneous
  Country: US (occurrence: US)
  Receive Date: 20150128
  Receipt Date: 20150128
  Transmission Date: 20150721
  Serious: No
  Sender: FDA-Public Use
  Company Number: US-PFIZER INC-2015030057

PATIENT
  Age: 64 Year
  Sex: Female
  Weight: 56 kg

DRUGS (7)
  1. PREMARIN [Concomitant]
     Active Substance: ESTROGENS, CONJUGATED
     Dosage: 0.03 MG, DAILY
     Route: 048
  2. FLUTICASONE [Concomitant]
     Active Substance: FLUTICASONE\FLUTICASONE PROPIONATE
     Dosage: UNK, DAILY
  3. FAMOTIDINE. [Concomitant]
     Active Substance: FAMOTIDINE
     Dosage: 20 MG, ONE IN THE AM AND ONE IN THE PM
     Route: 048
  4. IMIPRAMINE [Concomitant]
     Active Substance: IMIPRAMINE
     Dosage: 60 MG AT BEDTIME
     Route: 048
  5. ADVIL [Suspect]
     Active Substance: IBUPROFEN
     Dosage: 200 MG TABLET, WITH EACH MEAL
     Route: 048
     Dates: start: 201501
  6. LORAZEPAM. [Concomitant]
     Active Substance: LORAZEPAM
     Dosage: 1 MG AT BEDTIME
     Route: 048
  7. ADVIL [Suspect]
     Active Substance: IBUPROFEN
     Indication: BACK PAIN
     Dosage: TWO 200MG TABLETS WITH EACH MEAL
     Route: 048
     Dates: start: 20141216, end: 201501

REACTIONS (1)
  - Paraesthesia [Not Recovered/Not Resolved]

NARRATIVE: CASE EVENT DATE: 20150113
